FAERS Safety Report 5400017-4 (Version None)
Quarter: 2007Q3

REPORT INFORMATION
  Report Type: 
  Country: None (occurrence: None)
  Receive Date: 20070726
  Receipt Date: 20070726
  Transmission Date: 20080115
  Serious: Yes (Life-Threatening)
  Sender: FDA-Public Use
  Company Number: None

PATIENT
  Sex: Female
  Weight: 69.4003 kg

DRUGS (1)
  1. VERAMYST [Suspect]
     Indication: NASAL CONGESTION
     Dosage: 1 SPRAY ONCE A DAY NASAL
     Route: 045
     Dates: start: 20070719, end: 20070721

REACTIONS (3)
  - HEART RATE INCREASED [None]
  - HEART RATE IRREGULAR [None]
  - SYNCOPE [None]
